FAERS Safety Report 10750688 (Version 1)
Quarter: 2015Q1

REPORT INFORMATION
  Report Type: Spontaneous
  Country: IT (occurrence: IT)
  Receive Date: 20150130
  Receipt Date: 20150130
  Transmission Date: 20150721
  Serious: Yes (Hospitalization)
  Sender: FDA-Public Use
  Company Number: IT-ELI_LILLY_AND_COMPANY-IT201501006347

PATIENT
  Age: 67 Year
  Sex: Female
  Weight: 109 kg

DRUGS (2)
  1. GEMZAR [Suspect]
     Active Substance: GEMCITABINE HYDROCHLORIDE
     Indication: BLADDER CANCER
     Dosage: 1000 MG/M2, CYCLICAL
     Route: 042
     Dates: start: 20141022, end: 20150107
  2. CARBOPLATINE TEVA [Suspect]
     Active Substance: CARBOPLATIN
     Indication: BLADDER CANCER
     Dosage: 400 MG, CYCLICAL
     Route: 042
     Dates: start: 20141022, end: 20150107

REACTIONS (3)
  - Gastritis [Not Recovered/Not Resolved]
  - Off label use [Unknown]
  - Asthenia [Not Recovered/Not Resolved]

NARRATIVE: CASE EVENT DATE: 20141022
